FAERS Safety Report 9423784 (Version 1)
Quarter: 2013Q3

REPORT INFORMATION
  Report Type: Report from Study
  Country: IN (occurrence: IN)
  Receive Date: 20130728
  Receipt Date: 20130728
  Transmission Date: 20140515
  Serious: Yes (Death)
  Sender: FDA-Public Use
  Company Number: PHHY2013IN080024

PATIENT
  Age: 74 Year
  Sex: Male

DRUGS (1)
  1. ACLASTA [Suspect]
     Indication: OSTEOPOROSIS
     Dosage: 5 MG, PER 100 ML/ YEAR
     Route: 042
     Dates: start: 2012

REACTIONS (1)
  - Death [Fatal]
